FAERS Safety Report 20998840 (Version 2)
Quarter: 2022Q3

REPORT INFORMATION
  Report Type: Report from Study
  Country: US (occurrence: US)
  Receive Date: 20220623
  Receipt Date: 20220729
  Transmission Date: 20221027
  Serious: Yes (Hospitalization)
  Sender: FDA-Public Use
  Company Number: US-UCBSA-2022034029

PATIENT
  Age: 68 Year
  Sex: Female
  Weight: 63.039 kg

DRUGS (1)
  1. CERTOLIZUMAB PEGOL [Suspect]
     Active Substance: CERTOLIZUMAB PEGOL
     Indication: Rheumatoid arthritis
     Dosage: 200 MILLIGRAM, EV 4 WEEKS
     Route: 058
     Dates: start: 20170516, end: 202107

REACTIONS (2)
  - COVID-19 [Not Recovered/Not Resolved]
  - Gastritis bacterial [Unknown]

NARRATIVE: CASE EVENT DATE: 20210701
